FAERS Safety Report 4470716-X (Version None)
Quarter: 2004Q4

REPORT INFORMATION
  Report Type: 
  Country: None (occurrence: None)
  Receive Date: 20041006
  Receipt Date: 20040927
  Transmission Date: 20050328
  Serious: No
  Sender: FDA-Public Use
  Company Number: 2004UW20222

PATIENT
  Age: 40 Year
  Sex: Male

DRUGS (4)
  1. SEROQUEL [Suspect]
     Dosage: 450 MG DAILY PO
     Route: 048
  2. CELEXA [Suspect]
     Dosage: 10 MG DAILY PO
     Route: 048
  3. CLOZARIL [Concomitant]
     Dosage: 450 MG DAILY PO
     Route: 048
  4. DIVALPROEX SODIUM [Suspect]
     Dosage: 1375 MG DAILY PO
     Route: 048

REACTIONS (3)
  - ABDOMINAL PAIN [None]
  - COLITIS [None]
  - GASTROINTESTINAL HAEMORRHAGE [None]
